FAERS Safety Report 11516403 (Version 1)
Quarter: 2015Q3

REPORT INFORMATION
  Report Type: Spontaneous
  Country: US (occurrence: US)
  Receive Date: 20150917
  Receipt Date: 20150917
  Transmission Date: 20151125
  Serious: No
  Sender: FDA-Public Use
  Company Number: US-PFIZER INC-2015248587

PATIENT
  Age: 62 Year
  Sex: Female
  Weight: 91 kg

DRUGS (2)
  1. AVINZA [Suspect]
     Active Substance: MORPHINE SULFATE
     Indication: PAIN
     Dosage: 120 MG, 1X/DAY
     Dates: start: 2000
  2. AVINZA [Suspect]
     Active Substance: MORPHINE SULFATE
     Dosage: 120 MG, DAILY

REACTIONS (1)
  - No adverse event [Unknown]
